FAERS Safety Report 10013498 (Version 1)
Quarter: 2014Q1

REPORT INFORMATION
  Report Type: Report from Study
  Country: US (occurrence: US)
  Receive Date: 20140314
  Receipt Date: 20140314
  Transmission Date: 20141002
  Serious: Yes (Other)
  Sender: FDA-Public Use
  Company Number: US-ABBVIE-14P-163-1211077-00

PATIENT
  Sex: Female
  Weight: 67.19 kg

DRUGS (3)
  1. HUMIRA [Suspect]
     Indication: RHEUMATOID ARTHRITIS
     Dates: start: 20140120
  2. HUMIRA [Suspect]
     Dates: start: 20140212
  3. IMPLANON [Suspect]
     Indication: PRODUCT USED FOR UNKNOWN INDICATION

REACTIONS (6)
  - Axillary mass [Unknown]
  - Drug dose omission [Unknown]
  - Menstrual disorder [Unknown]
  - Back pain [Unknown]
  - Injection site pain [Unknown]
  - Visual impairment [Unknown]
